FAERS Safety Report 19195330 (Version 1)
Quarter: 2021Q2

REPORT INFORMATION
  Report Type: Spontaneous
  Country: US (occurrence: US)
  Receive Date: 20210429
  Receipt Date: 20210429
  Transmission Date: 20210717
  Serious: No
  Sender: FDA-Public Use
  Company Number: None

PATIENT
  Age: 46 Year
  Sex: Female
  Weight: 116.46 kg

DRUGS (11)
  1. MONTELUKAST 10 MG [Concomitant]
     Active Substance: MONTELUKAST SODIUM
     Dates: start: 20160404, end: 20201130
  2. PROVENTIL HFA 90 MCG/ACTUATION [Concomitant]
     Dates: start: 20200323
  3. CARVEDILOL 6.25 MG [Concomitant]
     Active Substance: CARVEDILOL
     Dates: start: 20200323
  4. SYMBICORT 160 MCG?4.5 MCG/ACTUATION HFA [Concomitant]
     Dates: start: 20200323
  5. METFORMIN [Concomitant]
     Active Substance: METFORMIN HYDROCHLORIDE
     Dates: start: 20150410, end: 20200528
  6. ZYRTEC [Concomitant]
     Active Substance: CETIRIZINE HYDROCHLORIDE
     Dates: start: 20190428
  7. DULAGLUTIDE. [Suspect]
     Active Substance: DULAGLUTIDE
     Dosage: ?          OTHER FREQUENCY:WEEKLY;?
     Route: 058
     Dates: start: 20190424, end: 20200323
  8. LIPITOR 80 MG [Concomitant]
     Dates: start: 20190728
  9. LOSARTAN 100 MG [Concomitant]
     Active Substance: LOSARTAN
     Dates: start: 20200323, end: 20200701
  10. HUMULIN R U?500 [Concomitant]
     Active Substance: INSULIN HUMAN
     Dates: start: 20190114, end: 20200323
  11. HCTZ 25 MG [Concomitant]
     Dates: start: 20200323

REACTIONS (2)
  - Nausea [None]
  - Vomiting [None]

NARRATIVE: CASE EVENT DATE: 20200323
